FAERS Safety Report 6667248-7 (Version None)
Quarter: 2010Q2

REPORT INFORMATION
  Report Type: 
  Country: None (occurrence: None)
  Receive Date: 20100401
  Receipt Date: 20100319
  Transmission Date: 20101027
  Serious: Yes (Hospitalization)
  Sender: FDA-Public Use
  Company Number: AMAG201000174

PATIENT
  Age: 85 Year
  Sex: Male
  Weight: 98 kg

DRUGS (15)
  1. FERAHEME [Suspect]
     Indication: IRON DEFICIENCY ANAEMIA
     Dosage: 510 MG, SINGLE, INTRAVENOUS
     Route: 042
     Dates: start: 20091221, end: 20091221
  2. FERAHEME [Suspect]
     Indication: RENAL FAILURE CHRONIC
     Dosage: 510 MG, SINGLE, INTRAVENOUS
     Route: 042
     Dates: start: 20091221, end: 20091221
  3. FERAHEME [Suspect]
     Indication: IRON DEFICIENCY ANAEMIA
     Dosage: 510 MG, SINGLE, INTRAVENOUS
     Route: 042
     Dates: start: 20100104, end: 20100104
  4. FERAHEME [Suspect]
     Indication: RENAL FAILURE CHRONIC
     Dosage: 510 MG, SINGLE, INTRAVENOUS
     Route: 042
     Dates: start: 20100104, end: 20100104
  5. ASPIRIN [Concomitant]
  6. HYDRALAZINE (HYDRALAZINE HYDROCHLORIDE) [Concomitant]
  7. NORVASC [Concomitant]
  8. LASIX [Concomitant]
  9. AMLODIPINE [Concomitant]
  10. TERAZOSIN HCL [Concomitant]
  11. SYNTHROID [Concomitant]
  12. CALCIUM (CALCIUM GLUCONATE) [Concomitant]
  13. INSULIN (INSULIN) [Concomitant]
  14. PRILOSEC [Concomitant]
  15. SODIUM BICARBONATE IN PLASTIC CONTAINER [Concomitant]

REACTIONS (4)
  - DYSPNOEA [None]
  - HYPOTENSION [None]
  - OXYGEN SATURATION DECREASED [None]
  - TACHYCARDIA [None]
